FAERS Safety Report 15454969 (Version 1)
Quarter: 2018Q4

REPORT INFORMATION
  Report Type: Spontaneous
  Country: GB (occurrence: GB)
  Receive Date: 20181002
  Receipt Date: 20181002
  Transmission Date: 20190204
  Serious: Yes (Disabling, Other)
  Sender: FDA-Public Use
  Company Number: GB-TEVA-2018-GB-960051

PATIENT
  Age: 76 Year
  Sex: Male
  Weight: 84.81 kg

DRUGS (7)
  1. CARDIDE SR PROLONGED RELEASE [Concomitant]
     Active Substance: INDAPAMIDE
     Dosage: 1.5 MILLIGRAM DAILY;
     Route: 048
  2. LOSARTAN. [Concomitant]
     Active Substance: LOSARTAN
     Dosage: 100 MILLIGRAM DAILY; UNTIL 1 DAY PRIOR TO TAKING LOSARTAN HYDROCH.
     Route: 065
  3. INDAPAMIDE. [Concomitant]
     Active Substance: INDAPAMIDE
     Dosage: 1.5 MILLIGRAM DAILY;
     Route: 065
  4. GLICLAZIDE [Concomitant]
     Active Substance: GLICLAZIDE
     Dosage: 320 MILLIGRAM DAILY; IN THE MORNING AND IN THE AFTERNOON.
     Route: 065
  5. LOSARTAN AND HYDROCHLOROTHIAZIDE [Suspect]
     Active Substance: HYDROCHLOROTHIAZIDE\LOSARTAN POTASSIUM
     Indication: HYPERTENSION
     Dosage: 1 DOSAGE FORMS DAILY; 100 MG / 25 MG
     Route: 048
  6. DOXADURA [Concomitant]
     Route: 065
  7. INSULATARD PORCINE [Concomitant]
     Dosage: 100 UNITS / ML SUSPENSION SUB CUT 32 IU/ML DAILY.
     Route: 065

REACTIONS (2)
  - Myositis [Unknown]
  - Myalgia [Recovering/Resolving]

NARRATIVE: CASE EVENT DATE: 20180605
